FAERS Safety Report 10810811 (Version 1)
Quarter: 2015Q1

REPORT INFORMATION
  Report Type: Spontaneous
  Country: US (occurrence: None)
  Receive Date: 20150213
  Receipt Date: 20150213
  Transmission Date: 20150721
  Serious: No
  Sender: FDA-Public Use
  Company Number: None

PATIENT
  Age: 72 Year
  Sex: Female

DRUGS (16)
  1. FISH OIL [Concomitant]
     Active Substance: FISH OIL
  2. VIT. D, FOLIC ACID, VIT. B - COMPLEX [Concomitant]
     Active Substance: FOLIC ACID\VITAMINS
  3. COUGH DROPS [Concomitant]
  4. CYMBALTA [Suspect]
     Active Substance: DULOXETINE HYDROCHLORIDE
     Indication: OSTEOARTHRITIS
     Route: 048
     Dates: start: 2014, end: 2015
  5. CYMBALTA [Suspect]
     Active Substance: DULOXETINE HYDROCHLORIDE
     Indication: ANXIETY
     Route: 048
     Dates: start: 2014, end: 2015
  6. AMLODIPINE [Concomitant]
     Active Substance: AMLODIPINE BESYLATE
  7. CELBREX [Concomitant]
  8. METHOTREXATE [Concomitant]
     Active Substance: METHOTREXATE
  9. OXYBUTYNIN [Concomitant]
     Active Substance: OXYBUTYNIN
  10. TUMS [Concomitant]
     Active Substance: CALCIUM CARBONATE
  11. FLAXSEED [Concomitant]
     Active Substance: FLAX SEED
  12. CYMBALTA [Suspect]
     Active Substance: DULOXETINE HYDROCHLORIDE
     Indication: PAIN MANAGEMENT
     Route: 048
     Dates: start: 2014, end: 2015
  13. VITE - VIT B [Concomitant]
  14. CYMBALTA [Suspect]
     Active Substance: DULOXETINE HYDROCHLORIDE
     Indication: BACK PAIN
     Route: 048
     Dates: start: 2014, end: 2015
  15. CYMBALTA [Suspect]
     Active Substance: DULOXETINE HYDROCHLORIDE
     Indication: DEPRESSION
     Route: 048
     Dates: start: 2014, end: 2015
  16. FOLIC ACID. [Concomitant]
     Active Substance: FOLIC ACID

REACTIONS (8)
  - Anger [None]
  - Unable to afford prescribed medication [None]
  - Product quality issue [None]
  - Product substitution issue [None]
  - Drug ineffective [None]
  - Tremor [None]
  - Feeling jittery [None]
  - Feeling abnormal [None]

NARRATIVE: CASE EVENT DATE: 20150125
